FAERS Safety Report 4929649-4 (Version None)
Quarter: 2006Q1

REPORT INFORMATION
  Report Type: 
  Country: None (occurrence: None)
  Receive Date: 20060224
  Receipt Date: 20060214
  Transmission Date: 20060701
  Serious: Yes (Other)
  Sender: FDA-Public Use
  Company Number: 2006022485

PATIENT
  Age: 32 Year
  Sex: Female
  Weight: 57 kg

DRUGS (2)
  1. NEURONTIN [Suspect]
     Indication: BIPOLAR DISORDER
     Dosage: 300 MG , ORAL
     Route: 048
     Dates: start: 20010101
  2. RISPERDAL [Concomitant]

REACTIONS (2)
  - ANGIONEUROTIC OEDEMA [None]
  - SARCOIDOSIS [None]
